FAERS Safety Report 10518521 (Version 1)
Quarter: 2014Q4

REPORT INFORMATION
  Report Type: Spontaneous
  Country: US (occurrence: None)
  Receive Date: 20141014
  Receipt Date: 20141014
  Transmission Date: 20150528
  Serious: Yes (Death, Hospitalization)
  Sender: FDA-Public Use
  Company Number: None

PATIENT
  Age: 80 Year
  Sex: Male
  Weight: 79.83 kg

DRUGS (2)
  1. XARELTO [Suspect]
     Active Substance: RIVAROXABAN
     Indication: ATRIAL FIBRILLATION
     Dosage: ONE  ONCE DAILY TAKEN BY MOUTH
     Route: 048
     Dates: start: 20121201, end: 20140201
  2. XARELTO [Suspect]
     Active Substance: RIVAROXABAN
     Indication: THROMBOSIS PROPHYLAXIS
     Dosage: ONE  ONCE DAILY TAKEN BY MOUTH
     Route: 048
     Dates: start: 20121201, end: 20140201

REACTIONS (6)
  - Procedural hypotension [None]
  - Abdominal pain upper [None]
  - Dizziness [None]
  - Splenic rupture [None]
  - Post procedural haemorrhage [None]
  - Nausea [None]

NARRATIVE: CASE EVENT DATE: 20140202
